FAERS Safety Report 5447052-8 (Version None)
Quarter: 2007Q3

REPORT INFORMATION
  Report Type: 
  Country: None (occurrence: None)
  Receive Date: 20070808
  Receipt Date: 20070706
  Transmission Date: 20080115
  Serious: Yes (Other)
  Sender: FDA-Public Use
  Company Number: 07C216

PATIENT
  Sex: Female

DRUGS (1)
  1. CLOTRIMAZOLE+ BETAMETHASONE DIPROPIONATE CR 1%/0.05% [Suspect]
     Indication: SCAR
     Dosage: AT NIGHT TIME
     Dates: start: 20070703

REACTIONS (2)
  - BURNING SENSATION [None]
  - PAIN [None]
